FAERS Safety Report 18941653 (Version 1)
Quarter: 2021Q1

REPORT INFORMATION
  Report Type: Spontaneous
  Country: CA (occurrence: CA)
  Receive Date: 20210225
  Receipt Date: 20210225
  Transmission Date: 20210420
  Serious: Yes (Other)
  Sender: FDA-Public Use
  Company Number: CA-TAKEDA-2021TUS009479

PATIENT
  Sex: Female
  Weight: 80 kg

DRUGS (17)
  1. CHANTIX [Concomitant]
     Active Substance: VARENICLINE TARTRATE
  2. HUMIRA [Suspect]
     Active Substance: ADALIMUMAB
     Indication: PRODUCT USED FOR UNKNOWN INDICATION
     Route: 058
  3. BUSCOPAN [Concomitant]
     Active Substance: BUTYLSCOPOLAMINE BROMIDE
  4. PENTASA [Suspect]
     Active Substance: MESALAMINE
     Indication: PRODUCT USED FOR UNKNOWN INDICATION
     Route: 065
  5. FENTANYL. [Concomitant]
     Active Substance: FENTANYL
  6. IMURAN [Suspect]
     Active Substance: AZATHIOPRINE
     Indication: PRODUCT USED FOR UNKNOWN INDICATION
     Route: 065
  7. ESTROGEN [Concomitant]
     Active Substance: ESTROGENS
  8. MIDAZOLAM. [Concomitant]
     Active Substance: MIDAZOLAM
  9. OMEPRAZOLE. [Concomitant]
     Active Substance: OMEPRAZOLE
  10. PROGESTERONE. [Concomitant]
     Active Substance: PROGESTERONE
  11. SERTRALINE [Concomitant]
     Active Substance: SERTRALINE HYDROCHLORIDE
  12. CORTISONE ACETATE. [Concomitant]
     Active Substance: CORTISONE ACETATE
  13. PREDNISONE. [Concomitant]
     Active Substance: PREDNISONE
  14. BENADRYL [Concomitant]
     Active Substance: DIPHENHYDRAMINE HYDROCHLORIDE
  15. HYDROCORTISONE. [Concomitant]
     Active Substance: HYDROCORTISONE
  16. INFLIXIMAB [Concomitant]
     Active Substance: INFLIXIMAB
  17. TRAZODONE [Concomitant]
     Active Substance: TRAZODONE HYDROCHLORIDE

REACTIONS (11)
  - Crohn^s disease [Unknown]
  - Malaise [Unknown]
  - Respiratory disorder [Unknown]
  - Swollen tongue [Unknown]
  - Gastrointestinal disorder [Unknown]
  - Drug ineffective [Unknown]
  - Glucose tolerance impaired [Unknown]
  - Depression [Unknown]
  - Dry mouth [Unknown]
  - Hepatic steatosis [Unknown]
  - Enteritis [Unknown]
